FAERS Safety Report 5122987-4 (Version None)
Quarter: 2006Q4

REPORT INFORMATION
  Report Type: 
  Country: None (occurrence: None)
  Receive Date: 20061004
  Receipt Date: 20061004
  Transmission Date: 20070319
  Serious: Yes (Other)
  Sender: FDA-Public Use
  Company Number: None

PATIENT
  Age: 80 Year
  Sex: Male
  Weight: 76.2043 kg

DRUGS (2)
  1. PLETAL [Suspect]
     Indication: PERIPHERAL VASCULAR DISORDER
     Dosage: 100 MG TWICE A DAY ORAL
     Route: 048
     Dates: start: 20060831, end: 20060925
  2. ADVIL [Concomitant]

REACTIONS (1)
  - OEDEMA PERIPHERAL [None]
